FAERS Safety Report 18568097 (Version 2)
Quarter: 2021Q1

REPORT INFORMATION
  Report Type: Spontaneous
  Country: JP (occurrence: JP)
  Receive Date: 20201202
  Receipt Date: 20210114
  Transmission Date: 20210419
  Serious: Yes (Hospitalization, Other)
  Sender: FDA-Public Use
  Company Number: JP-AMGEN-JPNSP2020193961

PATIENT
  Age: 92 Year
  Sex: Female

DRUGS (3)
  1. ONEALFA [Concomitant]
     Active Substance: ALFACALCIDOL
     Indication: OSTEOPOROSIS
     Dosage: 0.25 MICROGRAM, QD
     Dates: start: 202003
  2. LOXONIN [Concomitant]
     Active Substance: LOXOPROFEN SODIUM
     Indication: BACK PAIN
     Dosage: UNK UNK, QD
     Dates: start: 20200512
  3. EVENITY [Suspect]
     Active Substance: ROMOSOZUMAB-AQQG
     Indication: OSTEOPOROSIS
     Dosage: 105 MILLIGRAM
     Route: 058
     Dates: start: 20200303, end: 20201029

REACTIONS (2)
  - Mitral valve incompetence [Not Recovered/Not Resolved]
  - Off label use [Unknown]

NARRATIVE: CASE EVENT DATE: 20200303
